FAERS Safety Report 9503123 (Version 1)
Quarter: 2013Q3

REPORT INFORMATION
  Report Type: Spontaneous
  Country: DE (occurrence: DE)
  Receive Date: 20130906
  Receipt Date: 20130906
  Transmission Date: 20140515
  Serious: Yes (Hospitalization)
  Sender: FDA-Public Use
  Company Number: DE-AMGEN-DEUSP2013062012

PATIENT
  Age: 72 Year
  Sex: Female

DRUGS (1)
  1. PROLIA [Suspect]
     Indication: PRODUCT USED FOR UNKNOWN INDICATION
     Dosage: UNK UNK, Q6MO
     Route: 065
     Dates: start: 20110215

REACTIONS (3)
  - Psychosomatic disease [Unknown]
  - Drug abuse [Unknown]
  - Hepatitis [Unknown]
